FAERS Safety Report 9394501 (Version 2)
Quarter: 2013Q3

REPORT INFORMATION
  Report Type: Report from Study
  Country: BR (occurrence: BR)
  Receive Date: 20130711
  Receipt Date: 20130808
  Transmission Date: 20140515
  Serious: Yes (Other)
  Sender: FDA-Public Use
  Company Number: PHHY2013BR073327

PATIENT
  Age: 82 Year
  Sex: Male

DRUGS (3)
  1. DIOVAN [Suspect]
     Indication: HYPERTENSION
     Dosage: 80 MG, QD
     Route: 048
  2. OMEPRAZOLE [Concomitant]
     Indication: ABDOMINAL DISCOMFORT
     Dosage: 1 DF, DAILY
     Route: 048
  3. SULPAN [Concomitant]
     Indication: MUSCLE RELAXANT THERAPY
     Dosage: 1 DF (1 MG), DAILY
     Route: 048

REACTIONS (4)
  - Blood pressure increased [Recovered/Resolved]
  - Memory impairment [Recovered/Resolved]
  - Hypovitaminosis [Recovered/Resolved]
  - Syncope [Recovered/Resolved]
